FAERS Safety Report 6708573-0 (Version None)
Quarter: 2010Q2

REPORT INFORMATION
  Report Type: 
  Country: None (occurrence: None)
  Receive Date: 20100503
  Receipt Date: 20100421
  Transmission Date: 20101027
  Serious: Yes (Other)
  Sender: FDA-Public Use
  Company Number: PE-ELI_LILLY_AND_COMPANY-PE201004008145

PATIENT
  Age: 30 Year
  Sex: Male

DRUGS (3)
  1. PROZAC [Suspect]
     Indication: PERSONALITY DISORDER
     Dosage: 20 MG, DAILY (1/D)
     Route: 065
     Dates: start: 20100401
  2. ZYPREXA [Suspect]
     Dosage: 5 MG, DAILY (1/D)
     Route: 065
     Dates: start: 20100201
  3. VALPROATE SODIUM [Concomitant]
     Dosage: UNK, UNKNOWN
     Route: 065

REACTIONS (5)
  - AGITATION [None]
  - ANXIETY [None]
  - OFF LABEL USE [None]
  - PARANOIA [None]
  - SEROTONIN SYNDROME [None]
